FAERS Safety Report 22280542 (Version 5)
Quarter: 2024Q2

REPORT INFORMATION
  Report Type: Report from Study
  Country: US (occurrence: US)
  Receive Date: 20230503
  Receipt Date: 20240509
  Transmission Date: 20240717
  Serious: Yes (Other)
  Sender: FDA-Public Use
  Company Number: US-JAZZ PHARMACEUTICALS-2023-US-008615

PATIENT
  Age: 54 Year
  Sex: Female

DRUGS (6)
  1. SODIUM OXYBATE [Suspect]
     Active Substance: SODIUM OXYBATE
     Indication: Narcolepsy
  2. SODIUM OXYBATE [Suspect]
     Active Substance: SODIUM OXYBATE
     Indication: Cataplexy
     Dosage: 4.5 GRAM, BID
  3. SODIUM OXYBATE [Suspect]
     Active Substance: SODIUM OXYBATE
     Indication: Somnolence
  4. FEDEX [Concomitant]
  5. GABAPENTIN [Concomitant]
     Active Substance: GABAPENTIN
     Indication: Back injury
  6. GABAPENTIN [Concomitant]
     Active Substance: GABAPENTIN
     Indication: Neck injury

REACTIONS (7)
  - Surgery [Unknown]
  - Medical procedure [Unknown]
  - Gastrointestinal disorder [Unknown]
  - Hot flush [Unknown]
  - Incorrect dose administered [Unknown]
  - Product administration interrupted [Unknown]
  - Intentional dose omission [Unknown]

NARRATIVE: CASE EVENT DATE: 20240324
